FAERS Safety Report 10756084 (Version 1)
Quarter: 2015Q1

REPORT INFORMATION
  Report Type: Spontaneous
  Country: US (occurrence: US)
  Receive Date: 20150202
  Receipt Date: 20150202
  Transmission Date: 20150721
  Serious: Yes (Disabling, Other)
  Sender: FDA-Public Use
  Company Number: US-BAYER-2015-012253

PATIENT
  Age: 57 Year
  Sex: Female
  Weight: 74.84 kg

DRUGS (3)
  1. CORICIDIN D [CHLORPHENAM MAL,PARACET,PHENYLPROPANOLAM HCL] [Suspect]
     Active Substance: ACETAMINOPHEN\CHLORPHENIRAMINE MALEATE\PHENYLEPHRINE HYDROCHLORIDE
     Dosage: UNK
     Route: 048
  2. ALKA-SELTZER PLUS NOS [Suspect]
     Active Substance: ACETAMINOPHEN\ASPIRIN\CHLORPHENIRAMINE MALEATE\DEXTROMETHORPHAN HYDROBROMIDE\DIPHENHYDRAMINE HYDROCHLORIDE\DOXYLAMINE SUCCINATE\PHENYLEPHRINE BITARTRATE\PHENYLEPHRINE HYDROCHLORIDE
     Dosage: UNK
  3. BENZOCAINE. [Suspect]
     Active Substance: BENZOCAINE
     Dosage: UNK

REACTIONS (4)
  - Amnesia [None]
  - Cerebrovascular accident [None]
  - Partial seizures [None]
  - Hemiparesis [None]

NARRATIVE: CASE EVENT DATE: 19980623
